FAERS Safety Report 5370403-X (Version None)
Quarter: 2007Q2

REPORT INFORMATION
  Report Type: 
  Country: None (occurrence: None)
  Receive Date: 20070626
  Receipt Date: 20070208
  Transmission Date: 20071010
  Serious: No
  Sender: FDA-Public Use
  Company Number: US-AMGEN-US210303

PATIENT
  Sex: Female

DRUGS (3)
  1. ARANESP [Suspect]
     Indication: ANAEMIA
     Dates: start: 20070206
  2. UNSPECIFIED ANTIHYPERTENSIVE AGENT [Concomitant]
     Route: 065
     Dates: start: 20070206
  3. UNSPECIFIED ANTIHYPERTENSIVE AGENT [Concomitant]
     Route: 065

REACTIONS (1)
  - BLOOD PRESSURE DECREASED [None]
